FAERS Safety Report 10306192 (Version 2)
Quarter: 2014Q3

REPORT INFORMATION
  Report Type: Spontaneous
  Country: US (occurrence: US)
  Receive Date: 20140715
  Receipt Date: 20140718
  Transmission Date: 20150326
  Serious: No
  Sender: FDA-Public Use
  Company Number: US-BAYER-2014-104094

PATIENT
  Age: 71 Year
  Sex: Female
  Weight: 53 kg

DRUGS (3)
  1. ALEVE [Suspect]
     Active Substance: NAPROXEN SODIUM
     Indication: ANALGESIC THERAPY
     Dosage: 1 DF, QD
     Route: 048
     Dates: start: 201406
  2. MIRALAX [Concomitant]
     Active Substance: POLYETHYLENE GLYCOL 3350
  3. ALEVE [Suspect]
     Active Substance: NAPROXEN SODIUM
     Dosage: UNK
     Route: 048
     Dates: start: 201406, end: 201407

REACTIONS (3)
  - Faeces discoloured [Recovered/Resolved]
  - Haemorrhoids [Not Recovered/Not Resolved]
  - Proctalgia [None]

NARRATIVE: CASE EVENT DATE: 201407
